FAERS Safety Report 7224278-4 (Version None)
Quarter: 2011Q1

REPORT INFORMATION
  Report Type: 
  Country: None (occurrence: None)
  Receive Date: 20110106
  Receipt Date: 20110106
  Transmission Date: 20110831
  Serious: Yes (Hospitalization)
  Sender: FDA-Public Use
  Company Number: None

PATIENT
  Age: 82 Year
  Sex: Male
  Weight: 102.6 kg

DRUGS (26)
  1. ATROVENT [Concomitant]
  2. DIOVAN [Concomitant]
  3. LACTULOSE [Concomitant]
  4. NORVASC [Concomitant]
  5. AUGMENTIN '125' [Concomitant]
  6. M.V.I. [Concomitant]
  7. ZINC SULFITE [Concomitant]
  8. AMITRIPTYLINE HCL [Concomitant]
  9. TYLENOL-500 [Concomitant]
  10. SYNTHROID [Suspect]
  11. ZOCOR [Suspect]
  12. MIRALAX [Concomitant]
  13. NOVOLOG [Concomitant]
  14. NOVOLOG [Concomitant]
  15. AMIODARONE HCL [Suspect]
     Indication: ATRIAL FIBRILLATION
     Dosage: 200 MG DAILY PO
     Route: 048
  16. NITROGLYCERIN [Concomitant]
  17. ASPIRIN [Concomitant]
  18. SENOKOT [Concomitant]
  19. COREG [Concomitant]
  20. LANTUS [Concomitant]
  21. PROCRIT [Concomitant]
  22. BISACODYL [Concomitant]
  23. PERCOCET [Concomitant]
  24. VIT C [Concomitant]
  25. VIT C [Concomitant]
  26. COUMADIN [Concomitant]

REACTIONS (4)
  - PLEURAL EFFUSION [None]
  - RESPIRATORY FAILURE [None]
  - PNEUMONIA [None]
  - PULMONARY TOXICITY [None]
